FAERS Safety Report 6999917-3 (Version None)
Quarter: 2010Q3

REPORT INFORMATION
  Report Type: 
  Country: None (occurrence: None)
  Receive Date: 20100920
  Receipt Date: 20100414
  Transmission Date: 20110219
  Serious: No
  Sender: FDA-Public Use
  Company Number: US-ASTRAZENECA-2010SE09783

PATIENT
  Age: 12 Year
  Sex: Female
  Weight: 62.1 kg

DRUGS (18)
  1. SEROQUEL [Suspect]
     Indication: SOMNOLENCE
     Route: 048
     Dates: end: 20091201
  2. SEROQUEL [Suspect]
     Indication: AFFECTIVE DISORDER
     Route: 048
     Dates: end: 20091201
  3. SEROQUEL [Suspect]
     Route: 048
     Dates: start: 20091201
  4. SEROQUEL [Suspect]
     Route: 048
     Dates: start: 20091201
  5. SEROQUEL [Suspect]
     Route: 048
     Dates: start: 20091215, end: 20091231
  6. SEROQUEL [Suspect]
     Route: 048
     Dates: start: 20091215, end: 20091231
  7. SEROQUEL [Suspect]
     Route: 048
     Dates: start: 20100112, end: 20100209
  8. SEROQUEL [Suspect]
     Route: 048
     Dates: start: 20100112, end: 20100209
  9. SEROQUEL [Suspect]
     Route: 048
     Dates: start: 20100209
  10. SEROQUEL [Suspect]
     Route: 048
     Dates: start: 20100209
  11. RITALIN [Concomitant]
     Indication: ATTENTION DEFICIT/HYPERACTIVITY DISORDER
     Route: 048
  12. ABILIFY [Concomitant]
     Indication: HALLUCINATION
     Route: 048
     Dates: end: 20091101
  13. SLEEP AGENT [Concomitant]
  14. ZOLOFT [Concomitant]
     Indication: ANXIETY
     Route: 048
     Dates: end: 20100416
  15. REMERON [Concomitant]
     Indication: SLEEP DISORDER
     Dates: start: 20091201, end: 20100112
  16. REMERON [Concomitant]
     Indication: ANXIETY
     Dates: start: 20091201, end: 20100112
  17. GEODON [Concomitant]
     Indication: HALLUCINATION
     Dates: start: 20100307
  18. CELEXA [Concomitant]
     Indication: ANXIETY
     Dates: start: 20100416

REACTIONS (4)
  - ELECTROCARDIOGRAM PR PROLONGATION [None]
  - ELECTROCARDIOGRAM QRS COMPLEX PROLONGED [None]
  - ELECTROCARDIOGRAM QT PROLONGED [None]
  - ELECTROCARDIOGRAM ST SEGMENT ABNORMAL [None]
